FAERS Safety Report 7125560-1 (Version None)
Quarter: 2010Q4

REPORT INFORMATION
  Report Type: 
  Country: None (occurrence: None)
  Receive Date: 20101112
  Receipt Date: 20101028
  Transmission Date: 20110411
  Serious: Yes (Hospitalization, Other)
  Sender: FDA-Public Use
  Company Number: AUR-APL-2010-02746

PATIENT
  Age: 74 Year
  Sex: Female
  Weight: 77 kg

DRUGS (7)
  1. LISINOPRIL [Suspect]
     Indication: HYPERTENSION
     Dosage: 20MG DAILY,
     Dates: start: 20100101
  2. METOPROLOL [Suspect]
     Indication: HEART RATE INCREASED
     Dosage: 25MG DAILY,
     Dates: start: 20101019
  3. PRISTIQ [Suspect]
     Indication: DEPRESSION
     Dosage: 50 MG DAILY,
  4. ACETYLSALICYLIC ACID [Concomitant]
  5. VITAMIN D [Concomitant]
  6. COLACE [Concomitant]
  7. LORAZEPAM [Concomitant]

REACTIONS (7)
  - BLOOD CHOLESTEROL INCREASED [None]
  - COLITIS ISCHAEMIC [None]
  - CONDITION AGGRAVATED [None]
  - DEPRESSION [None]
  - DIARRHOEA [None]
  - HEART RATE INCREASED [None]
  - HYPERTENSION [None]
